FAERS Safety Report 7865487-0 (Version None)
Quarter: 2011Q4

REPORT INFORMATION
  Report Type: 
  Country: None (occurrence: None)
  Receive Date: 20111028
  Receipt Date: 20110106
  Transmission Date: 20120403
  Serious: No
  Sender: FDA-Public Use
  Company Number: US-GLAXOSMITHKLINE-A0903716A

PATIENT
  Age: 75 Year
  Sex: Male

DRUGS (17)
  1. PROZAC [Concomitant]
  2. LASIX [Concomitant]
  3. AMARYL [Concomitant]
  4. ADVAIR DISKUS 100/50 [Suspect]
     Indication: ASTHMA
     Dosage: 1PUFF TWICE PER DAY
     Route: 055
     Dates: start: 20010101
  5. PRINIVIL [Concomitant]
  6. LOPRESSOR [Concomitant]
  7. HYDRALAZINE HCL [Concomitant]
  8. ALPRAZOLAM [Concomitant]
  9. ALBUTEROL INHALER [Concomitant]
  10. NORVASC [Concomitant]
  11. SIMVASTATIN [Concomitant]
  12. LYRICA [Concomitant]
  13. GLUCOPHAGE [Concomitant]
  14. PREDNISOLONE [Concomitant]
  15. CATAPRES [Concomitant]
  16. ALBUTEROL [Concomitant]
  17. ISOSORBIDE DINITRATE [Concomitant]

REACTIONS (1)
  - DRUG INEFFECTIVE [None]
